FAERS Safety Report 12837008 (Version 1)
Quarter: 2016Q4

REPORT INFORMATION
  Report Type: Spontaneous
  Country: MX (occurrence: MX)
  Receive Date: 20161011
  Receipt Date: 20161011
  Transmission Date: 20170207
  Serious: Yes (Other)
  Sender: FDA-Public Use
  Company Number: MX-009507513-1607MEX002989

PATIENT
  Age: 28 Year
  Sex: Female

DRUGS (1)
  1. IMPLANON [Suspect]
     Active Substance: ETONOGESTREL
     Indication: CHEMICAL CONTRACEPTION
     Dosage: UNK, UNKNOWN
     Route: 058
     Dates: start: 20160603

REACTIONS (3)
  - Erythema [Unknown]
  - Abscess limb [Unknown]
  - Application site induration [Unknown]

NARRATIVE: CASE EVENT DATE: 201606
